FAERS Safety Report 21219254 (Version 3)
Quarter: 2023Q2

REPORT INFORMATION
  Report Type: Spontaneous
  Country: US (occurrence: US)
  Receive Date: 20220817
  Receipt Date: 20230413
  Transmission Date: 20230722
  Serious: Yes (Other)
  Sender: FDA-Public Use
  Company Number: US-JNJFOC-20220822635

PATIENT
  Age: 57 Year
  Sex: Female

DRUGS (19)
  1. ELMIRON [Suspect]
     Active Substance: PENTOSAN POLYSULFATE SODIUM
     Indication: Cystitis interstitial
     Dosage: PER DAY
     Route: 048
     Dates: start: 20140303, end: 20140609
  2. ELMIRON [Suspect]
     Active Substance: PENTOSAN POLYSULFATE SODIUM
     Dosage: PER DAY
     Route: 048
     Dates: start: 20140717, end: 20161005
  3. ELMIRON [Suspect]
     Active Substance: PENTOSAN POLYSULFATE SODIUM
     Dosage: PER DAY
     Route: 048
     Dates: start: 20161129, end: 20170208
  4. ELMIRON [Suspect]
     Active Substance: PENTOSAN POLYSULFATE SODIUM
     Dosage: PER DAY
     Route: 048
     Dates: start: 20170221, end: 20181106
  5. ELMIRON [Suspect]
     Active Substance: PENTOSAN POLYSULFATE SODIUM
     Dosage: PER DAY
     Route: 048
     Dates: start: 20190204, end: 20190806
  6. ELMIRON [Suspect]
     Active Substance: PENTOSAN POLYSULFATE SODIUM
     Dosage: PER DAY
     Route: 048
     Dates: start: 20191116, end: 20200804
  7. ATENOLOL [Concomitant]
     Active Substance: ATENOLOL
     Indication: Hypertension
     Dates: start: 20180110, end: 20200504
  8. LEVOTHYROXINE [Concomitant]
     Active Substance: LEVOTHYROXINE
     Indication: Hypothyroidism
     Dates: start: 20180108, end: 20200410
  9. MELOXICAM [Concomitant]
     Active Substance: MELOXICAM
     Indication: Arthritis
     Dates: start: 20150518, end: 20190501
  10. MELOXICAM [Concomitant]
     Active Substance: MELOXICAM
     Indication: Fibromyalgia
  11. OMEPRAZOLE [Concomitant]
     Active Substance: OMEPRAZOLE
     Indication: Gastrooesophageal reflux disease
     Dates: start: 20160307, end: 20210919
  12. FAMOTIDINE [Concomitant]
     Active Substance: FAMOTIDINE
     Indication: Gastrooesophageal reflux disease
     Dates: start: 20180709, end: 20191014
  13. CHLORDIAZEPOXIDE;CLIDINIUM [Concomitant]
     Indication: Ulcer
     Dates: start: 20140515, end: 20210709
  14. ACETAMINOPHEN\HYDROCODONE [Concomitant]
     Active Substance: ACETAMINOPHEN\HYDROCODONE
     Indication: Arthritis
     Dates: start: 20170108, end: 20211006
  15. ACETAMINOPHEN\HYDROCODONE [Concomitant]
     Active Substance: ACETAMINOPHEN\HYDROCODONE
     Indication: Fibromyalgia
  16. DEXILANT [Concomitant]
     Active Substance: DEXLANSOPRAZOLE
     Indication: Gastrooesophageal reflux disease
     Dates: start: 20150622, end: 20190409
  17. LYRICA [Concomitant]
     Active Substance: PREGABALIN
     Indication: Fibromyalgia
     Dates: start: 20180122, end: 20190409
  18. SULFAMETHOXAZOLE [Concomitant]
     Active Substance: SULFAMETHOXAZOLE
     Indication: Cystitis interstitial
     Dates: start: 20180312, end: 20181028
  19. CYANOCOBALAMIN [Concomitant]
     Active Substance: CYANOCOBALAMIN
     Indication: Vitamin B complex deficiency
     Dates: start: 20180421, end: 20190606

REACTIONS (2)
  - Pigmentary maculopathy [Not Recovered/Not Resolved]
  - Off label use [Unknown]

NARRATIVE: CASE EVENT DATE: 20170221
